FAERS Safety Report 5119615-0 (Version None)
Quarter: 2006Q4

REPORT INFORMATION
  Report Type: 
  Country: None (occurrence: None)
  Receive Date: 20061003
  Receipt Date: 20060802
  Transmission Date: 20070319
  Serious: Yes (Hospitalization)
  Sender: FDA-Public Use
  Company Number: JP-JPN-A200602941

PATIENT
  Age: 77 Year
  Sex: Female
  Weight: 50 kg

DRUGS (8)
  1. VALTREX [Suspect]
     Indication: HERPES ZOSTER
     Dosage: 1000MG THREE TIMES PER DAY
     Route: 048
     Dates: start: 20060727, end: 20060730
  2. ZOVIRAX [Suspect]
     Indication: DRUG USE FOR UNKNOWN INDICATION
     Dosage: 1000MG PER DAY
     Route: 042
     Dates: start: 20060726, end: 20060727
  3. MEVALOTIN [Concomitant]
     Route: 048
  4. UNKNOWN DRUG [Concomitant]
     Route: 065
  5. MICARDIS [Concomitant]
     Route: 048
  6. SPIROPENT [Concomitant]
     Route: 048
  7. CALCITRIOL [Concomitant]
     Route: 065
  8. AMLODIN [Concomitant]
     Route: 048

REACTIONS (3)
  - BLOOD PRESSURE INCREASED [None]
  - DIZZINESS [None]
  - RENAL FAILURE ACUTE [None]
